FAERS Safety Report 11789440 (Version 5)
Quarter: 2016Q1

REPORT INFORMATION
  Report Type: Report from Study
  Country: ID (occurrence: ID)
  Receive Date: 20151201
  Receipt Date: 20160302
  Transmission Date: 20160525
  Serious: Yes (Hospitalization)
  Sender: FDA-Public Use
  Company Number: ID-JNJFOC-20151005900

PATIENT
  Age: 61 Year
  Sex: Male

DRUGS (1)
  1. ZYTIGA [Suspect]
     Active Substance: ABIRATERONE ACETATE
     Indication: PROSTATE CANCER
     Route: 048
     Dates: start: 20151001, end: 20151230

REACTIONS (12)
  - Haematuria [Recovering/Resolving]
  - Vomiting [Unknown]
  - Weight decreased [Unknown]
  - Dysuria [Recovering/Resolving]
  - Suspected counterfeit product [Unknown]
  - Nausea [Recovered/Resolved]
  - Pain [Unknown]
  - Urinary tract operation [Not Recovered/Not Resolved]
  - Pollakiuria [Not Recovered/Not Resolved]
  - Decreased appetite [Recovered/Resolved]
  - Oliguria [Unknown]
  - Drug dose omission [Unknown]

NARRATIVE: CASE EVENT DATE: 20151015
